FAERS Safety Report 5142237-2 (Version None)
Quarter: 2006Q4

REPORT INFORMATION
  Report Type: 
  Country: None (occurrence: None)
  Receive Date: 20061030
  Receipt Date: 20061030
  Transmission Date: 20070319
  Serious: Yes (Hospitalization)
  Sender: FDA-Public Use
  Company Number: None

PATIENT
  Sex: Male
  Weight: 101.7872 kg

DRUGS (1)
  1. SODIUM PHOSPHATES [Suspect]
     Dosage: 45 ML    2 DOSES DAY BEFORE     PO
     Route: 048
     Dates: start: 20060717, end: 20060717

REACTIONS (4)
  - HYPERPARATHYROIDISM PRIMARY [None]
  - OEDEMA PERIPHERAL [None]
  - POST PROCEDURAL COMPLICATION [None]
  - RENAL FAILURE ACUTE [None]
